FAERS Safety Report 8922000 (Version 1)
Quarter: 2012Q4

REPORT INFORMATION
  Report Type: Spontaneous
  Country: US (occurrence: None)
  Receive Date: 20121120
  Receipt Date: 20121120
  Transmission Date: 20130627
  Serious: Yes (Other)
  Sender: FDA-Public Use
  Company Number: None

PATIENT
  Age: 35 Year
  Sex: Female
  Weight: 65.77 kg

DRUGS (1)
  1. BOTOX [Suspect]

REACTIONS (14)
  - Headache [None]
  - Fatigue [None]
  - Sensation of heaviness [None]
  - Photophobia [None]
  - Nausea [None]
  - Influenza like illness [None]
  - Anxiety [None]
  - Lyme disease [None]
  - Paraesthesia [None]
  - Oropharyngeal pain [None]
  - Dizziness [None]
  - Muscle twitching [None]
  - Chest discomfort [None]
  - Throat tightness [None]
